FAERS Safety Report 20744665 (Version 1)
Quarter: 2022Q2

REPORT INFORMATION
  Report Type: Spontaneous
  Country: US (occurrence: US)
  Receive Date: 20220425
  Receipt Date: 20220425
  Transmission Date: 20220721
  Serious: No
  Sender: FDA-Public Use
  Company Number: US-PFIZER INC-202101162450

PATIENT
  Age: 77 Year
  Sex: Male
  Weight: 88.45 kg

DRUGS (1)
  1. CHANTIX [Suspect]
     Active Substance: VARENICLINE TARTRATE

REACTIONS (3)
  - Drug ineffective [Unknown]
  - Nightmare [Unknown]
  - Asthenia [Unknown]
